FAERS Safety Report 17179162 (Version 1)
Quarter: 2019Q4

REPORT INFORMATION
  Report Type: Spontaneous
  Country: US (occurrence: US)
  Receive Date: 20191219
  Receipt Date: 20191219
  Transmission Date: 20200122
  Serious: Yes (Other)
  Sender: FDA-Public Use
  Company Number: US-ELI_LILLY_AND_COMPANY-US201912004024

PATIENT
  Age: 56 Year
  Sex: Female
  Weight: 104 kg

DRUGS (5)
  1. JANUVIA [Suspect]
     Active Substance: SITAGLIPTIN PHOSPHATE
     Indication: DIABETES MELLITUS
     Dosage: 75 U, QID
     Route: 065
  2. METFORMIN [Suspect]
     Active Substance: METFORMIN HYDROCHLORIDE
     Indication: DIABETES MELLITUS
     Dosage: 1000 MG, UNKNOWN
     Route: 065
  3. BASAGLAR [Suspect]
     Active Substance: INSULIN GLARGINE
     Indication: PRODUCT USED FOR UNKNOWN INDICATION
     Dosage: UNK UNK, UNKNOWN
     Route: 065
  4. BASAGLAR [Suspect]
     Active Substance: INSULIN GLARGINE
     Dosage: UNK UNK, UNKNOWN
     Route: 065
  5. JANUVIA [Suspect]
     Active Substance: SITAGLIPTIN PHOSPHATE
     Dosage: 25 U, TID

REACTIONS (17)
  - Fat tissue increased [Unknown]
  - Visual impairment [Unknown]
  - Fall [Unknown]
  - Loss of consciousness [Recovering/Resolving]
  - Pancreatitis [Unknown]
  - Alopecia [Recovering/Resolving]
  - Choking [Unknown]
  - Muscular weakness [Unknown]
  - Peripheral swelling [Recovering/Resolving]
  - Eye pain [Unknown]
  - Dark circles under eyes [Recovered/Resolved]
  - Insomnia [Unknown]
  - Asthma [Unknown]
  - Weight increased [Unknown]
  - Bone disorder [Unknown]
  - Upper limb fracture [Recovering/Resolving]
  - Blood glucose decreased [Recovering/Resolving]
